FAERS Safety Report 8536497-5 (Version None)
Quarter: 2012Q3

REPORT INFORMATION
  Report Type: 
  Country: None (occurrence: None)
  Receive Date: 20120725
  Receipt Date: 20120719
  Transmission Date: 20120928
  Serious: Yes (Other)
  Sender: FDA-Public Use
  Company Number: PHHY2012DE063414

PATIENT
  Sex: Male

DRUGS (1)
  1. RITALIN [Suspect]
     Indication: NARCOLEPSY
     Dosage: 80 MG, DAILY
     Route: 048

REACTIONS (1)
  - PARKINSON'S DISEASE [None]
